FAERS Safety Report 4444442-7 (Version None)
Quarter: 2004Q3

REPORT INFORMATION
  Report Type: 
  Country: None (occurrence: None)
  Receive Date: 20040902
  Receipt Date: 20040813
  Transmission Date: 20050211
  Serious: Yes (Other)
  Sender: FDA-Public Use
  Company Number: USA040875622

PATIENT
  Age: 74 Year
  Sex: Female

DRUGS (3)
  1. EVISTA [Suspect]
  2. PREMARIN [Concomitant]
  3. PROVERA [Concomitant]

REACTIONS (5)
  - DISEASE RECURRENCE [None]
  - HOT FLUSH [None]
  - OESOPHAGEAL CARCINOMA [None]
  - WEIGHT DECREASED [None]
  - WEIGHT INCREASED [None]
